FAERS Safety Report 8278159-8 (Version None)
Quarter: 2012Q2

REPORT INFORMATION
  Report Type: 
  Country: None (occurrence: None)
  Receive Date: 20120412
  Receipt Date: 20111026
  Transmission Date: 20120825
  Serious: No
  Sender: FDA-Public Use
  Company Number: US-ASTRAZENECA-2011SE29403

PATIENT
  Age: 53 Year
  Sex: Female

DRUGS (5)
  1. NEXIUM [Suspect]
     Indication: GASTROOESOPHAGEAL REFLUX DISEASE
     Route: 048
  2. ACTOS [Concomitant]
  3. NEXIUM [Suspect]
     Route: 048
  4. THEOPHYLLINE [Concomitant]
  5. LYRICA [Concomitant]

REACTIONS (5)
  - BIPOLAR I DISORDER [None]
  - DIABETES MELLITUS [None]
  - RESPIRATORY DISORDER [None]
  - HYPERTENSION [None]
  - BLOOD CHOLESTEROL INCREASED [None]
